FAERS Safety Report 5590526-X (Version None)
Quarter: 2008Q1

REPORT INFORMATION
  Report Type: 
  Country: None (occurrence: None)
  Receive Date: 20080114
  Receipt Date: 20080110
  Transmission Date: 20080703
  Serious: Yes (Hospitalization, Other)
  Sender: FDA-Public Use
  Company Number: US-BOEHRINGER INGELHEIM PHARMACEUTICALS, INC.-2007-BP-22387BP

PATIENT
  Age: 54 Year
  Sex: Male
  Weight: 83 kg

DRUGS (6)
  1. MIRAPEX [Suspect]
     Indication: RESTLESS LEGS SYNDROME
     Dates: end: 20071002
  2. AMBIEN CR [Concomitant]
     Route: 048
     Dates: start: 20060816
  3. FLEXERIL [Concomitant]
     Route: 048
     Dates: start: 20060816
  4. OPANA ER [Concomitant]
     Route: 048
     Dates: start: 20071205
  5. XANAX [Concomitant]
     Route: 048
     Dates: start: 20070105
  6. NORCO [Concomitant]
     Route: 048
     Dates: start: 20061211, end: 20071205

REACTIONS (2)
  - HALLUCINATION, AUDITORY [None]
  - INJURY [None]
